FAERS Safety Report 12268679 (Version 2)
Quarter: 2016Q2

REPORT INFORMATION
  Report Type: Spontaneous
  Country: US (occurrence: US)
  Receive Date: 20160414
  Receipt Date: 20160531
  Transmission Date: 20160815
  Serious: Yes (Death, Other)
  Sender: FDA-Public Use
  Company Number: US-BAUSCH-BL-2016-008677

PATIENT
  Age: 85 Year
  Sex: Female

DRUGS (1)
  1. XIFAXAN [Suspect]
     Active Substance: RIFAXIMIN
     Indication: HEPATITIS C
     Route: 048

REACTIONS (5)
  - Haematemesis [Unknown]
  - Death [Fatal]
  - Adverse event [Unknown]
  - Depression [Unknown]
  - Blindness [Unknown]

NARRATIVE: CASE EVENT DATE: 20151204
